FAERS Safety Report 17706146 (Version 1)
Quarter: 2020Q2

REPORT INFORMATION
  Report Type: Spontaneous
  Country: JP (occurrence: JP)
  Receive Date: 20200424
  Receipt Date: 20200424
  Transmission Date: 20200714
  Serious: Yes (Death, Other)
  Sender: FDA-Public Use
  Company Number: JP-009507513-2002JPN000195J

PATIENT
  Age: 89 Year
  Sex: Female
  Weight: 29 kg

DRUGS (15)
  1. CILNIDIPINE [Concomitant]
     Active Substance: CILNIDIPINE
     Indication: HYPERTENSION
     Dosage: 10 MILLIGRAM, QD
     Route: 048
     Dates: start: 20200118, end: 20200202
  2. UNASYN [Concomitant]
     Active Substance: AMPICILLIN SODIUM\SULBACTAM SODIUM
     Indication: PNEUMONIA
     Dosage: 1.5 GRAM, BID
     Route: 042
     Dates: start: 20200121, end: 20200125
  3. AZILVA [Concomitant]
     Active Substance: AZILSARTAN KAMEDOXOMIL
     Indication: HYPERTENSION
     Dosage: 20 MILLIGRAM, QD
     Route: 048
     Dates: start: 20200118, end: 20200202
  4. ALFACALCIDOL [Concomitant]
     Active Substance: ALFACALCIDOL
     Indication: OSTEOPOROSIS
     Dosage: 0.5 MILLIGRAM, QD
     Route: 048
     Dates: start: 20200118, end: 20200202
  5. FUROSEMIDE. [Concomitant]
     Active Substance: FUROSEMIDE
     Indication: CARDIAC FAILURE CONGESTIVE
     Dosage: 40 MILLIGRAM, QD
     Route: 048
     Dates: start: 20200121, end: 20200202
  6. WYSTAL [Concomitant]
     Active Substance: CEFOPERAZONE SODIUM\SULBACTAM SODIUM
     Dosage: UNK
     Route: 065
     Dates: start: 20200118
  7. STROMECTOL [Suspect]
     Active Substance: IVERMECTIN
     Indication: ACARODERMATITIS
     Dosage: 6 MILLIGRAM, QD,AFTER LUNCH
     Route: 048
     Dates: start: 20200130, end: 20200130
  8. SPIRONOLACTONE. [Concomitant]
     Active Substance: SPIRONOLACTONE
     Indication: CARDIAC FAILURE CONGESTIVE
     Dosage: 50 MILLIGRAM, QD
     Route: 048
     Dates: start: 20200118, end: 20200202
  9. AMBROXOL HYDROCHLORIDE [Concomitant]
     Active Substance: AMBROXOL HYDROCHLORIDE
     Indication: PNEUMONIA
     Dosage: 15 MILLIGRAM, BID
     Route: 048
     Dates: start: 20200119, end: 20200202
  10. GLUCONSAN K [Concomitant]
     Active Substance: POTASSIUM GLUCONATE
     Indication: HYPOKALAEMIA
     Dosage: 1 GRAM, BID
     Route: 048
     Dates: start: 20200121, end: 20200202
  11. MINOCYCLINE [Concomitant]
     Active Substance: MINOCYCLINE HYDROCHLORIDE
     Indication: PNEUMONIA
     Dosage: 100 MILLIGRAM, BID
     Route: 042
     Dates: start: 20200126, end: 20200130
  12. PHENOTHRIN [Concomitant]
     Active Substance: PHENOTHRIN
     Indication: ACARODERMATITIS
     Dosage: 30 GRAM
     Dates: start: 20200201, end: 20200201
  13. ATORVASTATIN [Concomitant]
     Active Substance: ATORVASTATIN
     Indication: HYPERLIPIDAEMIA
     Dosage: 10 MILLIGRAM, QD
     Route: 048
     Dates: start: 20200118, end: 20200202
  14. LANSOPRAZOLE OD [Concomitant]
     Active Substance: LANSOPRAZOLE
     Indication: GASTROOESOPHAGEAL REFLUX DISEASE
     Dosage: 15 MILLIGRAM, QD
     Route: 048
     Dates: start: 20200118, end: 20200202
  15. MAGNESIUM (UNSPECIFIED) [Concomitant]
     Active Substance: MAGNESIUM
     Indication: CONSTIPATION
     Dosage: 250 MILLIGRAM, QD
     Route: 048
     Dates: start: 20200118, end: 20200202

REACTIONS (3)
  - Cardiac failure congestive [Fatal]
  - Feeding disorder [Unknown]
  - Loss of consciousness [Unknown]

NARRATIVE: CASE EVENT DATE: 20200202
